FAERS Safety Report 7309539-2 (Version None)
Quarter: 2011Q1

REPORT INFORMATION
  Report Type: 
  Country: None (occurrence: None)
  Receive Date: 20110223
  Receipt Date: 20110210
  Transmission Date: 20110831
  Serious: Yes (Life-Threatening)
  Sender: FDA-Public Use
  Company Number: GB-GENENTECH-307877

PATIENT
  Sex: Male
  Weight: 94 kg

DRUGS (28)
  1. ASPIRIN [Concomitant]
     Dosage: 300 MG, QD
     Route: 048
     Dates: start: 20101018, end: 20101018
  2. ASPIRIN [Concomitant]
     Dosage: 75 MG, QD
     Route: 048
     Dates: start: 20101030
  3. CLOPIDOGREL [Concomitant]
     Dosage: 75 MG, QAM
     Route: 048
     Dates: start: 20101002, end: 20101008
  4. PARACETAMOL [Concomitant]
     Indication: PAIN
     Dosage: 1 G, PRN
     Route: 048
     Dates: start: 20100930, end: 20101020
  5. HEPARIN [Concomitant]
     Indication: MYOCARDIAL INFARCTION
     Dosage: 5000 U, QAM
     Route: 058
     Dates: start: 20101001, end: 20101001
  6. ACETAMINOPHEN WITH PROPOXYPHENE HCL TAB [Concomitant]
     Indication: ANALGESIC THERAPY
     Dosage: 500 MG, TID
     Route: 048
     Dates: end: 20101001
  7. GTN SPRAY [Concomitant]
     Indication: ANGINA PECTORIS
     Dosage: UNK
     Route: 048
     Dates: end: 20101031
  8. RITUXIMAB [Suspect]
     Indication: B-CELL LYMPHOMA
     Dosage: 890 MG, Q21D
     Route: 042
     Dates: start: 20100611, end: 20100930
  9. FRUSEMIDE [Concomitant]
     Dosage: 80 MG, QD
     Route: 042
     Dates: start: 20101030, end: 20101030
  10. VINCRISTINE [Suspect]
     Indication: B-CELL LYMPHOMA
     Dosage: 2 MG, Q21D
     Route: 042
     Dates: start: 20100611, end: 20100930
  11. ASPIRIN [Concomitant]
     Indication: MYOCARDIAL INFARCTION
     Dosage: 75 MG, QAM
     Route: 048
     Dates: start: 20101002
  12. RAMIPRIL [Concomitant]
     Indication: MYOCARDIAL INFARCTION
     Dosage: 2.5 MG, QAM
     Route: 048
     Dates: start: 20101002, end: 20101026
  13. MORPHINE [Concomitant]
     Indication: MYOCARDIAL INFARCTION
     Dosage: 2.5 MG, PRN
     Route: 042
     Dates: start: 20101001, end: 20101031
  14. FRUSEMIDE [Concomitant]
     Indication: POLYURIA
     Dosage: 60 MG, QAM
     Route: 042
     Dates: start: 20101001, end: 20101008
  15. OMEPRAZOLE [Concomitant]
     Indication: GASTROOESOPHAGEAL REFLUX DISEASE
     Dosage: 20 MG, QD
     Route: 048
     Dates: start: 20101019
  16. ISOSORBIDE MONONITRATE [Concomitant]
     Indication: ANGINA PECTORIS
     Dosage: 30 MG, QD
     Route: 048
     Dates: end: 20101001
  17. FRUSEMIDE [Concomitant]
     Dosage: 40 MG, QD
     Route: 042
     Dates: start: 20101009, end: 20101013
  18. ATORVASTATIN [Concomitant]
     Indication: MYOCARDIAL INFARCTION
     Dosage: 80 MG, QAM
     Route: 048
     Dates: start: 20101002, end: 20101029
  19. ASPIRIN [Concomitant]
     Indication: MYOCARDIAL INFARCTION
     Dosage: 300 MG, QAM
     Route: 048
     Dates: start: 20101001, end: 20101001
  20. ATENOLOL [Concomitant]
     Indication: HYPERTENSION
     Dosage: 50 MG, QD
     Route: 048
     Dates: start: 20101001
  21. AMLODIPINE [Concomitant]
     Indication: HYPERTENSION
     Dosage: 5 MG, QD
     Route: 048
     Dates: end: 20101001
  22. CYCLOPHOSPHAMIDE [Suspect]
     Indication: B-CELL LYMPHOMA
     Dosage: 1500 MG, Q21D
     Route: 042
     Dates: start: 20100611, end: 20100930
  23. PREDNISOLONE [Suspect]
     Indication: B-CELL LYMPHOMA
     Dosage: 80 MG, Q21D
     Route: 042
     Dates: start: 20100611, end: 20101004
  24. CLOPIDOGREL [Concomitant]
     Indication: MYOCARDIAL INFARCTION
     Dosage: 600 MG, QAM
     Route: 048
     Dates: start: 20101001, end: 20101001
  25. CLOPIDOGREL [Concomitant]
     Dosage: 75 MG, QD
     Route: 048
     Dates: start: 20101019, end: 20101021
  26. FRUSEMIDE [Concomitant]
     Dosage: 80 MG, BID
     Route: 042
     Dates: start: 20101020, end: 20101023
  27. CHLORPHENIRAMINE MALEATE [Concomitant]
     Indication: PRODUCT USED FOR UNKNOWN INDICATION
     Dosage: 10 MG, QD
     Route: 042
     Dates: start: 20100930, end: 20100930
  28. SIMVASTATIN [Concomitant]
     Indication: BLOOD CHOLESTEROL INCREASED
     Dosage: 40 MG, QD
     Route: 048
     Dates: start: 20101001

REACTIONS (2)
  - MYOCARDIAL INFARCTION [None]
  - SEPSIS [None]
